FAERS Safety Report 8531510-3 (Version None)
Quarter: 2012Q3

REPORT INFORMATION
  Report Type: 
  Country: None (occurrence: None)
  Receive Date: 20120723
  Receipt Date: 20120713
  Transmission Date: 20120928
  Serious: No
  Sender: FDA-Public Use
  Company Number: US-ASTRAZENECA-2012SE39461

PATIENT
  Age: 63 Year
  Sex: Female
  Weight: 78 kg

DRUGS (9)
  1. AMLODIPINE [Concomitant]
  2. VALIUM [Concomitant]
  3. CRESTOR [Suspect]
     Route: 048
     Dates: start: 20120101
  4. AVAPRO [Concomitant]
  5. FOLIC ACID [Concomitant]
  6. CRESTOR [Suspect]
     Route: 048
  7. BACLOFEN [Concomitant]
  8. CRESTOR [Suspect]
     Indication: BLOOD CHOLESTEROL INCREASED
     Route: 048
     Dates: start: 20100101
  9. ASPIRIN [Concomitant]

REACTIONS (9)
  - GROIN PAIN [None]
  - SOMNOLENCE [None]
  - INTENTIONAL DRUG MISUSE [None]
  - DYSPNOEA [None]
  - WEIGHT INCREASED [None]
  - URINARY TRACT PAIN [None]
  - FALL [None]
  - MYALGIA [None]
  - BLOOD TRIGLYCERIDES INCREASED [None]
